FAERS Safety Report 6430931-2 (Version None)
Quarter: 2009Q4

REPORT INFORMATION
  Report Type: 
  Country: None (occurrence: None)
  Receive Date: 20091106
  Receipt Date: 20091030
  Transmission Date: 20100525
  Serious: Yes (Disabling)
  Sender: FDA-Public Use
  Company Number: JP-AVENTIS-200912894JP

PATIENT
  Age: 67 Year
  Sex: Male
  Weight: 81 kg

DRUGS (1)
  1. TAXOTERE [Suspect]
     Route: 041
     Dates: start: 20081028, end: 20081209

REACTIONS (1)
  - SCLERODERMA [None]
